FAERS Safety Report 5151889-2 (Version None)
Quarter: 2006Q4

REPORT INFORMATION
  Report Type: 
  Country: None (occurrence: None)
  Receive Date: 20061109
  Receipt Date: 20061031
  Transmission Date: 20070319
  Serious: Yes (Death, Life-Threatening, Hospitalization)
  Sender: FDA-Public Use
  Company Number: HQWYE050101NOV06

PATIENT
  Age: 51 Year
  Sex: Male

DRUGS (13)
  1. MYLOTARG [Suspect]
     Indication: ACUTE MYELOID LEUKAEMIA RECURRENT
     Dosage: 6 MG/M^2 1X PER 1 DAY INTRAVENOUS DRIP; SEE IMAGE
     Route: 041
     Dates: start: 20060905, end: 20060905
  2. MYLOTARG [Suspect]
     Indication: ACUTE MYELOID LEUKAEMIA RECURRENT
     Dosage: 6 MG/M^2 1X PER 1 DAY INTRAVENOUS DRIP; SEE IMAGE
     Route: 041
     Dates: start: 20060919, end: 20060919
  3. CYTARABINE [Concomitant]
  4. NOVANTRONE [Concomitant]
  5. POLYMYXIN B SULFATE [Concomitant]
  6. FAMOTIDINE [Concomitant]
  7. SULFAMETHOXAZOLE + TRIMETHOPRIM [Concomitant]
  8. ALLORINE (ALLOPURINOL) [Concomitant]
  9. VFEND [Concomitant]
  10. SELBEX (TEPRENONE) [Concomitant]
  11. KYTRIL [Concomitant]
  12. OXYCONTIN [Concomitant]
  13. SOSEGON (PENTAZOCINE) [Concomitant]

REACTIONS (20)
  - ACUTE RESPIRATORY DISTRESS SYNDROME [None]
  - ANAEMIA [None]
  - BILIRUBIN CONJUGATED INCREASED [None]
  - BLOOD ALKALINE PHOSPHATASE INCREASED [None]
  - BLOOD BILIRUBIN INCREASED [None]
  - BLOOD LACTATE DEHYDROGENASE INCREASED [None]
  - CELLULITIS [None]
  - DISSEMINATED INTRAVASCULAR COAGULATION [None]
  - DYSPHAGIA [None]
  - HEPATIC FUNCTION ABNORMAL [None]
  - HERPES SIMPLEX [None]
  - MOUTH HAEMORRHAGE [None]
  - NEUTROPHIL COUNT DECREASED [None]
  - OTITIS EXTERNA [None]
  - PLATELET COUNT DECREASED [None]
  - PNEUMONIA [None]
  - SEPSIS [None]
  - SEPTIC SHOCK [None]
  - STOMATITIS [None]
  - WHITE BLOOD CELL COUNT DECREASED [None]
